FAERS Safety Report 8513043-3 (Version None)
Quarter: 2012Q3

REPORT INFORMATION
  Report Type: 
  Country: None (occurrence: None)
  Receive Date: 20120716
  Receipt Date: 20120704
  Transmission Date: 20120928
  Serious: Yes (Hospitalization)
  Sender: FDA-Public Use
  Company Number: CH-BAXTER-2012BAX010415

PATIENT
  Age: 69 Year
  Sex: Female

DRUGS (8)
  1. CYCLOPHOSPHAMIDE [Suspect]
     Route: 042
     Dates: start: 20120101, end: 20120301
  2. PIRACETAM [Concomitant]
     Route: 065
  3. PHLEBOSTASIN [Concomitant]
     Dosage: 2 TABLETS
     Route: 065
  4. TAXOL [Suspect]
     Route: 042
     Dates: start: 20120102, end: 20120510
  5. BETASERC [Concomitant]
     Route: 065
  6. EPIRUBICIN HYDROCHLORIDE [Suspect]
     Route: 042
     Dates: start: 20120101, end: 20120301
  7. AMLODIPINE [Concomitant]
     Route: 065
  8. HERCEPTIN [Suspect]
     Route: 042
     Dates: start: 20120102, end: 20120510

REACTIONS (5)
  - INTERSTITIAL LUNG DISEASE [None]
  - NEUTROPHIL COUNT DECREASED [None]
  - ANAEMIA [None]
  - LEUKOPENIA [None]
  - LYMPHOPENIA [None]
